FAERS Safety Report 7768726-X (Version None)
Quarter: 2011Q3

REPORT INFORMATION
  Report Type: 
  Country: None (occurrence: None)
  Receive Date: 20110922
  Receipt Date: 20110218
  Transmission Date: 20111222
  Serious: No
  Sender: FDA-Public Use
  Company Number: US-ASTRAZENECA-2011SE09442

PATIENT
  Age: 49 Year
  Sex: Female
  Weight: 68 kg

DRUGS (12)
  1. LORAZEPAM [Concomitant]
  2. VENTOLIN HFA [Concomitant]
  3. MECLIZINE [Concomitant]
     Indication: DIZZINESS
  4. FLEXERIL [Concomitant]
     Indication: MUSCLE SPASMS
  5. LISINOPRIL [Concomitant]
     Indication: HYPERTENSION
  6. METOPROLOL TARTRATE [Concomitant]
     Indication: HYPERTENSION
  7. PREVACID [Concomitant]
     Indication: ULCER
  8. PRAVASTATIN [Concomitant]
     Indication: HYPERCHOLESTEROLAEMIA
  9. SEROQUEL XR [Suspect]
     Route: 048
     Dates: start: 20080101, end: 20090101
  10. ASPIRIN [Concomitant]
  11. SEROQUEL XR [Suspect]
     Route: 048
     Dates: start: 20110101, end: 20110101
  12. ADVAIR DISKUS 100/50 [Concomitant]

REACTIONS (5)
  - ULCER [None]
  - MUSCLE SPASMS [None]
  - DYSPNOEA [None]
  - HYPERTENSION [None]
  - BLOOD CHOLESTEROL INCREASED [None]
